FAERS Safety Report 12428021 (Version 5)
Quarter: 2016Q4

REPORT INFORMATION
  Report Type: Spontaneous
  Country: US (occurrence: US)
  Receive Date: 20160602
  Receipt Date: 20161027
  Transmission Date: 20170207
  Serious: Yes (Death, Other)
  Sender: FDA-Public Use
  Company Number: US-WEST-WARD PHARMACEUTICALS CORP.-US-H14001-16-00867

PATIENT
  Age: 78 Year
  Sex: Male
  Weight: 96.6 kg

DRUGS (3)
  1. TESTOSTERONE CYPIONATE USP [Suspect]
     Active Substance: TESTOSTERONE CYPIONATE
     Route: 030
     Dates: start: 20150217, end: 20150217
  2. TESTOSTERONE CYPIONATE USP [Suspect]
     Active Substance: TESTOSTERONE CYPIONATE
     Indication: BLOOD TESTOSTERONE DECREASED
     Route: 030
     Dates: start: 20150204, end: 20150204
  3. TESTOSTERONE CYPIONATE USP [Suspect]
     Active Substance: TESTOSTERONE CYPIONATE
     Indication: ERECTILE DYSFUNCTION
     Route: 030
     Dates: start: 20150128, end: 20150128

REACTIONS (10)
  - Cardio-respiratory arrest [Fatal]
  - Cardiomegaly [Unknown]
  - Atelectasis [Unknown]
  - Arteriosclerosis coronary artery [Unknown]
  - Emphysema [Unknown]
  - Drug ineffective [Recovered/Resolved]
  - Prostate cancer stage IV [Fatal]
  - Metastases to liver [Fatal]
  - Hepatic failure [Fatal]
  - Metastasis [Fatal]

NARRATIVE: CASE EVENT DATE: 201502
